FAERS Safety Report 6033919-9 (Version None)
Quarter: 2009Q1

REPORT INFORMATION
  Report Type: 
  Country: None (occurrence: None)
  Receive Date: 20090108
  Receipt Date: 20090108
  Transmission Date: 20090719
  Serious: Yes (Other)
  Sender: FDA-Public Use
  Company Number: None

PATIENT
  Age: 55 Year
  Sex: Female

DRUGS (3)
  1. TRILEPTAL [Suspect]
     Indication: BIPOLAR DISORDER
     Dosage: 600MG BID P.O.
     Route: 048
     Dates: start: 20080801, end: 20080901
  2. SEROQUEL [Concomitant]
  3. LORAZEPAM [Concomitant]

REACTIONS (3)
  - DEPRESSION [None]
  - PAIN [None]
  - PRODUCT QUALITY ISSUE [None]
